FAERS Safety Report 13154906 (Version 2)
Quarter: 2022Q3

REPORT INFORMATION
  Report Type: Spontaneous
  Country: FR (occurrence: FR)
  Receive Date: 20170126
  Receipt Date: 20220928
  Transmission Date: 20221027
  Serious: Yes (Death, Other)
  Sender: FDA-Public Use
  Company Number: FR-MYLANLABS-2017M1003896

PATIENT
  Age: 62 Year
  Sex: Male

DRUGS (9)
  1. METHYLPREDNISOLONE [Suspect]
     Active Substance: METHYLPREDNISOLONE
     Indication: Immunosuppression
     Dosage: UNK (METHYLPREDNISOLONE HEMISUCCINATE; ADMINISTERED AFTER 2ND TRANSPLANT)
     Route: 065
     Dates: start: 20150303
  2. TACROLIMUS [Suspect]
     Active Substance: TACROLIMUS
     Indication: Immunosuppression
     Dosage: UNK (ADMINISTERED AFTER 2ND TRANSPLANT)
     Route: 065
  3. MYCOPHENOLATE MOFETIL [Suspect]
     Active Substance: MYCOPHENOLATE MOFETIL
     Indication: Immunosuppression
     Dosage: 1 GRAM, BID
     Route: 065
     Dates: end: 2015
  4. PIPERACILLIN SODIUM\TAZOBACTAM SODIUM [Suspect]
     Active Substance: PIPERACILLIN SODIUM\TAZOBACTAM SODIUM
     Dosage: 4 GRAM, TID
     Route: 065
     Dates: start: 2015
  5. TACROLIMUS [Suspect]
     Active Substance: TACROLIMUS
     Indication: Immunosuppression
     Dosage: 2 MILLIGRAM, BID
     Route: 048
  6. COTRIMOXAZOLE [Suspect]
     Active Substance: SULFAMETHOXAZOLE\TRIMETHOPRIM
     Indication: Antibiotic therapy
     Dosage: 800 MILLIGRAM
     Route: 065
     Dates: start: 20150303
  7. BASILIXIMAB [Suspect]
     Active Substance: BASILIXIMAB
     Indication: Immunosuppression
     Dosage: UNK
     Route: 065
     Dates: start: 20150303
  8. SOLU-MEDROL [Suspect]
     Active Substance: METHYLPREDNISOLONE SODIUM SUCCINATE
     Indication: Immunosuppression
     Dosage: 40 MILLIGRAM, QD (DISCONTINUED AFTER 1ST TRANSPLANT REJECTION PRIOR TO RETRANSPLANTATION)
     Route: 065
     Dates: end: 2015
  9. FLUMAZENIL [Concomitant]
     Active Substance: FLUMAZENIL
     Indication: Product used for unknown indication
     Dosage: UNK
     Route: 042

REACTIONS (3)
  - Geotrichum infection [Fatal]
  - Septic shock [Fatal]
  - Multiple organ dysfunction syndrome [Fatal]

NARRATIVE: CASE EVENT DATE: 20150301
